FAERS Safety Report 5877919-8 (Version None)
Quarter: 2008Q3

REPORT INFORMATION
  Report Type: 
  Country: None (occurrence: None)
  Receive Date: 20080911
  Receipt Date: 20080905
  Transmission Date: 20090109
  Serious: Yes (Death)
  Sender: FDA-Public Use
  Company Number: A0746884A

PATIENT
  Age: 92 Year
  Sex: Female
  Weight: 50 kg

DRUGS (7)
  1. SERETIDE [Suspect]
     Indication: DYSPNOEA
     Route: 055
     Dates: start: 20080501, end: 20080805
  2. PAROXETINE HCL [Concomitant]
     Dates: start: 20070401, end: 20080815
  3. LOSARTAN POTASSIUM [Concomitant]
     Dates: start: 20080201, end: 20080815
  4. SPIRONOLACTONE [Concomitant]
     Dates: start: 20080801, end: 20080815
  5. CARVEDILOL [Concomitant]
     Dates: start: 20060101, end: 20080815
  6. LASIX [Concomitant]
     Dates: start: 20060101, end: 20080815
  7. FLUTICASONE PROPIONATE [Concomitant]
     Dates: start: 20080501

REACTIONS (1)
  - SEPTIC SHOCK [None]
